FAERS Safety Report 5128958-6 (Version None)
Quarter: 2006Q4

REPORT INFORMATION
  Report Type: 
  Country: None (occurrence: None)
  Receive Date: 20061016
  Receipt Date: 20061016
  Transmission Date: 20070319
  Serious: Yes (Other)
  Sender: FDA-Public Use
  Company Number: None

PATIENT
  Sex: Female
  Weight: 65.7716 kg

DRUGS (1)
  1. CYMBALTA [Suspect]
     Indication: ANTIDEPRESSANT THERAPY
     Dosage: 60MG PER DAY PO
     Route: 048
     Dates: start: 20060301, end: 20060701

REACTIONS (15)
  - AGGRESSION [None]
  - BRUXISM [None]
  - CONVULSION [None]
  - DEPRESSION [None]
  - DISSOCIATION [None]
  - DRUG WITHDRAWAL SYNDROME [None]
  - FEAR [None]
  - HALLUCINATION, AUDITORY [None]
  - HALLUCINATION, VISUAL [None]
  - MUSCLE CONTRACTIONS INVOLUNTARY [None]
  - MYALGIA [None]
  - NERVOUS SYSTEM DISORDER [None]
  - PAIN IN JAW [None]
  - SLEEP TERROR [None]
  - WRONG TECHNIQUE IN DRUG USAGE PROCESS [None]
